FAERS Safety Report 14846236 (Version 1)
Quarter: 2018Q2

REPORT INFORMATION
  Report Type: Report from Study
  Country: GB (occurrence: GB)
  Receive Date: 20180504
  Receipt Date: 20180504
  Transmission Date: 20180711
  Serious: Yes (Other)
  Sender: FDA-Public Use
  Company Number: GB-TEVA-2018-GB-887258

PATIENT
  Age: 55 Year
  Sex: Female

DRUGS (4)
  1. THYROXINE [Concomitant]
     Active Substance: LEVOTHYROXINE
     Route: 065
  2. ANGELIQ [Concomitant]
     Active Substance: DROSPIRENONE\ESTRADIOL
     Route: 065
  3. CITALOPRAM [Concomitant]
     Active Substance: CITALOPRAM HYDROBROMIDE
     Route: 065
  4. COPAXONE [Suspect]
     Active Substance: GLATIRAMER ACETATE
     Indication: MULTIPLE SCLEROSIS
     Dosage: 40MG/ML
     Route: 058
     Dates: start: 20180418

REACTIONS (12)
  - Back pain [Unknown]
  - Feeling cold [Unknown]
  - Headache [Unknown]
  - Feeling hot [Unknown]
  - Influenza like illness [Unknown]
  - Eye contusion [Unknown]
  - Confusional state [Unknown]
  - Chest discomfort [Unknown]
  - Balance disorder [Unknown]
  - Rash [Not Recovered/Not Resolved]
  - Skin reaction [Unknown]
  - Pain in extremity [Unknown]

NARRATIVE: CASE EVENT DATE: 20180418
